FAERS Safety Report 23691398 (Version 1)
Quarter: 2024Q2

REPORT INFORMATION
  Report Type: Spontaneous
  Country: CN (occurrence: CN)
  Receive Date: 20240401
  Receipt Date: 20240401
  Transmission Date: 20240716
  Serious: Yes (Hospitalization, Other)
  Sender: FDA-Public Use
  Company Number: CN-ABBVIE-5696690

PATIENT
  Age: 56 Year
  Sex: Male
  Weight: 68 kg

DRUGS (8)
  1. VENETOCLAX [Suspect]
     Active Substance: VENETOCLAX
     Indication: Chemotherapy
     Dosage: 200 MILLIGRAM?ONCE A DAY
     Route: 048
     Dates: start: 20240310, end: 20240310
  2. VENETOCLAX [Suspect]
     Active Substance: VENETOCLAX
     Indication: Chemotherapy
     Dosage: 100 MILLIGRAM?ONCE A DAY
     Route: 048
     Dates: start: 20240309, end: 20240309
  3. VENETOCLAX [Suspect]
     Active Substance: VENETOCLAX
     Indication: Chemotherapy
     Dosage: 400 MILLIGRAM?ONCE A DAY
     Route: 048
     Dates: start: 20240312, end: 20240318
  4. VINDESINE SULFATE [Suspect]
     Active Substance: VINDESINE SULFATE
     Indication: Chemotherapy
     Dosage: 4 MILLIGRAM?FOR INJECTION
     Route: 041
     Dates: start: 20240318, end: 20240318
  5. VINDESINE SULFATE [Suspect]
     Active Substance: VINDESINE SULFATE
     Indication: Chemotherapy
     Dosage: 4 MILLIGRAM?11 MAR 2024, 18 MAR 2024? INTRAVENOUS GLUCOSE TOLERANCE TEST
     Route: 041
     Dates: start: 20240311, end: 20240311
  6. DOXORUBICIN HYDROCHLORIDE [Suspect]
     Active Substance: DOXORUBICIN HYDROCHLORIDE
     Indication: Chemotherapy
     Dosage: 90 MILLIGRAM?FOR INJECTION?PUMP INJECTION
     Route: 041
     Dates: start: 20240312, end: 20240312
  7. CYCLOPHOSPHAMIDE [Suspect]
     Active Substance: CYCLOPHOSPHAMIDE
     Indication: Chemotherapy
     Dosage: 1000 MILLIGRAM?FOR INJECTION?500 MG TWO TIMES A DAY?INTRAVENOUS GLUCOSE TOLERANCE TEST
     Route: 041
     Dates: start: 20240309, end: 20240311
  8. DEXAMETHASONE SODIUM PHOSPHATE [Concomitant]
     Active Substance: DEXAMETHASONE PHOSPHATE\DEXAMETHASONE SODIUM PHOSPHATE
     Indication: Chemotherapy
     Dosage: 40 MILLIGRAM?FOR INJECTION?INTRAVENOUS GLUCOSE TOLERANCE TEST
     Route: 041
     Dates: start: 20240309, end: 20240312

REACTIONS (2)
  - Myelosuppression [Unknown]
  - Agranulocytosis [Unknown]

NARRATIVE: CASE EVENT DATE: 20240318
